FAERS Safety Report 18452113 (Version 1)
Quarter: 2020Q4

REPORT INFORMATION
  Report Type: Spontaneous
  Country: NL (occurrence: NL)
  Receive Date: 20201102
  Receipt Date: 20201102
  Transmission Date: 20210114
  Serious: Yes (Hospitalization)
  Sender: FDA-Public Use
  Company Number: NL-ACCORD-206943

PATIENT
  Sex: Female
  Weight: 62 kg

DRUGS (6)
  1. OMEPRAZOLE. [Concomitant]
     Active Substance: OMEPRAZOLE
     Dosage: 20 MG (MILLIGRAM)
  2. OXAZEPAM. [Concomitant]
     Active Substance: OXAZEPAM
  3. ABILIFY [Concomitant]
     Active Substance: ARIPIPRAZOLE
     Dosage: TABLET, 30 MG (MILLIGRAM)
  4. VENLAFAXINE/VENLAFAXINE HYDROCHLORIDE [Concomitant]
     Active Substance: VENLAFAXINE HYDROCHLORIDE
     Dosage: 150 MG (MILLIGRAMS)
  5. CLOZAPINE. [Suspect]
     Active Substance: CLOZAPINE
     Indication: SCHIZOPHRENIA
     Dosage: 600 MG PER DAY
     Dates: start: 1994
  6. METFORMIN [Concomitant]
     Active Substance: METFORMIN HYDROCHLORIDE
     Dosage: NOT KNOWN ANYMORE,500/5 MG

REACTIONS (3)
  - Diabetes mellitus [Recovered/Resolved]
  - Weight increased [Recovered/Resolved]
  - Psychotic disorder [Recovered/Resolved]
